FAERS Safety Report 10232806 (Version 1)
Quarter: 2014Q2

REPORT INFORMATION
  Report Type: Report from Study
  Country: BR (occurrence: BR)
  Receive Date: 20140612
  Receipt Date: 20140612
  Transmission Date: 20141212
  Serious: Yes (Hospitalization, Other)
  Sender: FDA-Public Use
  Company Number: PHHY2014BR053853

PATIENT
  Sex: Male
  Weight: 51 kg

DRUGS (4)
  1. EXJADE [Suspect]
     Indication: CHELATION THERAPY
     Dosage: 3 DF, DAILY
     Route: 048
  2. EXJADE [Suspect]
     Indication: SICKLE CELL ANAEMIA
     Dosage: 3 DF, DAILY
     Route: 048
  3. HYDROXYUREA [Concomitant]
     Indication: HAEMOGLOBIN S INCREASED
     Dosage: 2 DF, DAILY (SINCE 5 YEARS AGO)
  4. FOLIC ACID [Concomitant]
     Indication: VITAMIN SUPPLEMENTATION
     Dosage: 1 DF, DAILY (SINCE HE WAS CHILD)

REACTIONS (4)
  - Pharyngitis [Unknown]
  - Pneumonia [Unknown]
  - Sickle cell anaemia with crisis [Recovered/Resolved]
  - Infection [Recovered/Resolved]
